FAERS Safety Report 11322417 (Version 2)
Quarter: 2015Q3

REPORT INFORMATION
  Report Type: Spontaneous
  Country: US (occurrence: None)
  Receive Date: 20150728
  Receipt Date: 20150831
  Transmission Date: 20151125
  Serious: Yes (Life-Threatening, Hospitalization, Other)
  Sender: FDA-Public Use
  Company Number: NSR_02160_2015

PATIENT
  Age: 10 Year
  Sex: Male

DRUGS (1)
  1. BACLOFEN. [Suspect]
     Active Substance: BACLOFEN
     Indication: DIPLEGIA
     Dosage: 40 ML, 500 MCG/ML INTRATHECAL
     Route: 037
     Dates: start: 201307

REACTIONS (7)
  - Unresponsive to stimuli [None]
  - Drug withdrawal syndrome [None]
  - Respiratory depression [None]
  - Device malfunction [None]
  - Bradycardia [None]
  - Accidental overdose [None]
  - Hypotonia [None]
